FAERS Safety Report 17658212 (Version 1)
Quarter: 2020Q2

REPORT INFORMATION
  Report Type: Spontaneous
  Country: DE (occurrence: DE)
  Receive Date: 20200412
  Receipt Date: 20200412
  Transmission Date: 20200713
  Serious: Yes (Death, Life-Threatening, Hospitalization, Other)
  Sender: FDA-Public Use
  Company Number: DE-PBT-000162

PATIENT
  Age: 63 Year

DRUGS (6)
  1. PREDNISOLONE. [Suspect]
     Active Substance: PREDNISOLONE
     Indication: IMMUNOSUPPRESSANT DRUG THERAPY
     Route: 065
  2. TACROLIMUS. [Suspect]
     Active Substance: TACROLIMUS
     Indication: IMMUNOSUPPRESSANT DRUG THERAPY
     Route: 065
  3. EVEROLIMUS. [Suspect]
     Active Substance: EVEROLIMUS
     Indication: IMMUNOSUPPRESSANT DRUG THERAPY
     Route: 065
  4. MYCOPHENOLIC ACID. [Suspect]
     Active Substance: MYCOPHENOLIC ACID
     Indication: IMMUNOSUPPRESSANT DRUG THERAPY
     Route: 065
  5. SULFAMETHOXAZOLE,TRIMETHOPRIM [Concomitant]
     Active Substance: SULFAMETHOXAZOLE\TRIMETHOPRIM
     Indication: INFECTION PROPHYLAXIS
     Dosage: TWO TIMES A WEEK
     Route: 065
  6. ITRACONAZOLE. [Concomitant]
     Active Substance: ITRACONAZOLE
     Indication: INFECTION PROPHYLAXIS
     Route: 065

REACTIONS (13)
  - Respiratory failure [Fatal]
  - Hyponatraemia [Unknown]
  - Klebsiella infection [Unknown]
  - Cerebral infarction [Unknown]
  - Subarachnoid haemorrhage [Unknown]
  - White blood cell count decreased [Unknown]
  - Disseminated varicella zoster vaccine virus infection [Fatal]
  - Varicella zoster virus infection [Not Recovered/Not Resolved]
  - Hypokalaemia [Unknown]
  - Encephalitis [Unknown]
  - Multiple organ dysfunction syndrome [Unknown]
  - Coma [Unknown]
  - Septic shock [Unknown]
